FAERS Safety Report 26138100 (Version 1)
Quarter: 2025Q4

REPORT INFORMATION
  Report Type: Spontaneous
  Country: US (occurrence: US)
  Receive Date: 20251210
  Receipt Date: 20251210
  Transmission Date: 20260117
  Serious: Yes (Life-Threatening, Hospitalization)
  Sender: ACCORD
  Company Number: US-MLMSERVICE-20251121-PI718348-00108-2

PATIENT
  Age: 58 Year
  Sex: Male

DRUGS (5)
  1. CLOZAPINE [Interacting]
     Active Substance: CLOZAPINE
     Indication: Psychiatric care
  2. RIOCIGUAT [Interacting]
     Active Substance: RIOCIGUAT
     Indication: Pulmonary hypertension
     Dosage: INCREASED TO 2.5 MG TID ONE MONTH BEFORE PRESENTATION.
  3. RISPERIDONE [Concomitant]
     Active Substance: RISPERIDONE
     Indication: Psychiatric care
     Dosage: LONG-ACTING INJECTABLE
  4. VALPROIC ACID [Concomitant]
     Active Substance: VALPROIC ACID
     Indication: Paranoia
     Dosage: WHICH HAD BEEN TITRATED OVER YEARS
  5. VALPROIC ACID [Concomitant]
     Active Substance: VALPROIC ACID
     Indication: Aggression
     Dosage: WHICH HAD BEEN TITRATED OVER YEARS

REACTIONS (10)
  - Mental status changes [Unknown]
  - Fatigue [Unknown]
  - Gait disturbance [Unknown]
  - Dyskinesia [Unknown]
  - Dysarthria [Unknown]
  - Delirium [Unknown]
  - Abdominal distension [Unknown]
  - Toxicity to various agents [Unknown]
  - Drug interaction [Unknown]
  - Blood creatinine increased [Unknown]
